FAERS Safety Report 9167874 (Version 2)
Quarter: 2013Q1

REPORT INFORMATION
  Report Type: Spontaneous
  Country: CA (occurrence: None)
  Receive Date: 20130226
  Receipt Date: 20130304
  Transmission Date: 20140127
  Serious: Yes (Hospitalization)
  Sender: FDA-Public Use
  Company Number: 2013034814

PATIENT
  Age: 5 Year
  Sex: Female
  Weight: 20 kg

DRUGS (2)
  1. PRIVIGEN [Suspect]
     Indication: KAWASAKI^S DISEASE
     Dosage: 2 G/KG INTRAVENOUS (NOT OTHERWISE SPECIFIED)), (40 G TOTAL, 2 G/KG INTRAVENOUS (NOT OTHERWISE SPECIFIED))
     Route: 042
     Dates: start: 20130128, end: 20130128
  2. CEFTRIAXONE (CEFTRIAXONE) [Concomitant]

REACTIONS (3)
  - Haemoglobin decreased [None]
  - Fatigue [None]
  - Delayed haemolytic transfusion reaction [None]
